FAERS Safety Report 25548343 (Version 1)
Quarter: 2025Q3

REPORT INFORMATION
  Report Type: Spontaneous
  Country: US (occurrence: US)
  Receive Date: 20250714
  Receipt Date: 20250714
  Transmission Date: 20251020
  Serious: No
  Sender: DR REDDYS
  Company Number: US-DRL-USA-USA/2025/06/009111

PATIENT
  Sex: Female

DRUGS (1)
  1. FLUOROURACIL [Suspect]
     Active Substance: FLUOROURACIL
     Indication: Product used for unknown indication
     Dosage: APPLY IT ONCE A DAY AT NIGHT FOR TWO WEEKS AND THEN STOP FOR TWO WEEKS AND THEN REAPPLY FOR ANOTHER
     Route: 065

REACTIONS (1)
  - Inappropriate schedule of product administration [Unknown]
